FAERS Safety Report 12039444 (Version 1)
Quarter: 2016Q1

REPORT INFORMATION
  Report Type: Spontaneous
  Country: US (occurrence: None)
  Receive Date: 20160205
  Receipt Date: 20160205
  Transmission Date: 20160526
  Serious: Yes (Life-Threatening, Hospitalization)
  Sender: FDA-Public Use
  Company Number: None

PATIENT
  Age: 70 Year
  Sex: Male
  Weight: 101.15 kg

DRUGS (2)
  1. IPILIMUMAB 50 MG BMS [Suspect]
     Active Substance: IPILIMUMAB
  2. NIVOLUMAB 100 MG BMS [Suspect]
     Active Substance: NIVOLUMAB
     Indication: METASTATIC MALIGNANT MELANOMA

REACTIONS (6)
  - Respiratory distress [None]
  - Immune system disorder [None]
  - Condition aggravated [None]
  - Skin toxicity [None]
  - Lethargy [None]
  - Stevens-Johnson syndrome [None]

NARRATIVE: CASE EVENT DATE: 20160128
